FAERS Safety Report 7815785-1 (Version None)
Quarter: 2011Q4

REPORT INFORMATION
  Report Type: 
  Country: None (occurrence: None)
  Receive Date: 20111014
  Receipt Date: 20111011
  Transmission Date: 20120403
  Serious: Yes (Life-Threatening)
  Sender: FDA-Public Use
  Company Number: US-BAYER-2011-098968

PATIENT
  Sex: Female

DRUGS (3)
  1. DROSPIRENONE AND ETHINYL ESTRADIOL [Suspect]
     Route: 048
  2. YASMIN [Suspect]
     Route: 048
  3. YAZ [Suspect]
     Dosage: UNK
     Route: 048

REACTIONS (9)
  - MYOCARDIAL INFARCTION [None]
  - DYSPNOEA [None]
  - INJURY [None]
  - PAIN [None]
  - GENERAL PHYSICAL HEALTH DETERIORATION [None]
  - CHEST PAIN [None]
  - ANHEDONIA [None]
  - ANXIETY [None]
  - SYNCOPE [None]
